FAERS Safety Report 8594443-2 (Version None)
Quarter: 2012Q3

REPORT INFORMATION
  Report Type: 
  Country: None (occurrence: None)
  Receive Date: 20120815
  Receipt Date: 20120809
  Transmission Date: 20120928
  Serious: No
  Sender: FDA-Public Use
  Company Number: US-BIOGENIDEC-2012BI030615

PATIENT
  Age: 60 Year
  Sex: Female

DRUGS (2)
  1. AVONEX [Suspect]
     Indication: MULTIPLE SCLEROSIS
     Route: 030
     Dates: start: 20080801, end: 20091001
  2. AVONEX [Suspect]
     Route: 030
     Dates: start: 20100201

REACTIONS (2)
  - INJURY ASSOCIATED WITH DEVICE [None]
  - INJECTION SITE PAIN [None]
